FAERS Safety Report 24404180 (Version 1)
Quarter: 2024Q4

REPORT INFORMATION
  Report Type: Report from Study
  Country: US (occurrence: US)
  Receive Date: 20241007
  Receipt Date: 20241007
  Transmission Date: 20250115
  Serious: Yes (Hospitalization, Other)
  Sender: ACADIA PHARMACEUTICALS
  Company Number: US-ACADIA PHARMACEUTICALS INC.-ACA-2024-PIM-006010

PATIENT
  Age: 79 Year
  Sex: Male

DRUGS (17)
  1. NUPLAZID [Suspect]
     Active Substance: PIMAVANSERIN TARTRATE
     Indication: Parkinson^s disease
     Dosage: 34 MILLIGRAM, QD
     Route: 048
     Dates: start: 20230411
  2. NUPLAZID [Suspect]
     Active Substance: PIMAVANSERIN TARTRATE
     Indication: Hallucination
  3. VITAMIN D3 [Concomitant]
     Active Substance: CHOLECALCIFEROL
  4. IRON [Concomitant]
     Active Substance: IRON
  5. SYNTHROID [Concomitant]
     Active Substance: LEVOTHYROXINE SODIUM
  6. NAPROXEN [Concomitant]
     Active Substance: NAPROXEN
  7. CARBIDOPA\LEVODOPA [Concomitant]
     Active Substance: CARBIDOPA\LEVODOPA
  8. ESCITALOPRAM [Concomitant]
     Active Substance: ESCITALOPRAM OXALATE
  9. ALENDRONATE [Concomitant]
     Active Substance: ALENDRONATE SODIUM
  10. BUPROPION [Concomitant]
     Active Substance: BUPROPION
  11. ATORVASTATIN [Concomitant]
     Active Substance: ATORVASTATIN
  12. FINASTERIDE [Concomitant]
     Active Substance: FINASTERIDE
  13. DONEPEZIL [Concomitant]
     Active Substance: DONEPEZIL
  14. OMEPRAZOLE [Concomitant]
     Active Substance: OMEPRAZOLE
  15. TRAZODONE [Concomitant]
     Active Substance: TRAZODONE HYDROCHLORIDE
  16. MEMANTINE [Concomitant]
     Active Substance: MEMANTINE
  17. METHOCARBAMOL [Concomitant]
     Active Substance: METHOCARBAMOL

REACTIONS (2)
  - Intestinal perforation [Recovered/Resolved]
  - Ostomy bag placement [Unknown]

NARRATIVE: CASE EVENT DATE: 20240911
